FAERS Safety Report 4997791-8 (Version None)
Quarter: 2006Q2

REPORT INFORMATION
  Report Type: 
  Country: None (occurrence: None)
  Receive Date: 20060510
  Receipt Date: 20060428
  Transmission Date: 20061013
  Serious: Yes (Hospitalization)
  Sender: FDA-Public Use
  Company Number: FR-JNJFOC-20060405974

PATIENT
  Age: 76 Year
  Sex: Female

DRUGS (11)
  1. TAVANIC [Suspect]
     Indication: DRUG USE FOR UNKNOWN INDICATION
     Route: 048
     Dates: start: 20060126
  2. SINTROM [Interacting]
     Indication: DRUG USE FOR UNKNOWN INDICATION
     Route: 048
     Dates: end: 20060209
  3. PROZAC [Concomitant]
     Route: 065
  4. SECTRAL [Concomitant]
     Route: 065
  5. GLUCOPHAGE [Concomitant]
     Route: 065
  6. DITROPAN [Concomitant]
     Route: 065
  7. COVERSYL [Concomitant]
     Route: 065
  8. CATAPRES [Concomitant]
     Route: 065
  9. FENOFIBRATE [Concomitant]
     Route: 065
  10. ENDOTELON [Concomitant]
     Route: 065
  11. ENDOTELON [Concomitant]
     Route: 065

REACTIONS (3)
  - DRUG INTERACTION [None]
  - INTERNATIONAL NORMALISED RATIO INCREASED [None]
  - RECTAL HAEMORRHAGE [None]
